FAERS Safety Report 4348338-0 (Version None)
Quarter: 2004Q2

REPORT INFORMATION
  Report Type: 
  Country: None (occurrence: None)
  Receive Date: 20040427
  Receipt Date: 20040402
  Transmission Date: 20050107
  Serious: Yes (Hospitalization)
  Sender: FDA-Public Use
  Company Number: FR-GLAXOSMITHKLINE-B0328762A

PATIENT
  Age: 42 Year
  Sex: Female

DRUGS (1)
  1. AUGMENTIN [Suspect]
     Indication: ILL-DEFINED DISORDER
     Route: 048
     Dates: start: 20040201, end: 20040201

REACTIONS (3)
  - BACK PAIN [None]
  - OEDEMA [None]
  - URTICARIA [None]
